FAERS Safety Report 8384135-7 (Version None)
Quarter: 2012Q2

REPORT INFORMATION
  Report Type: 
  Country: None (occurrence: None)
  Receive Date: 20120524
  Receipt Date: 20120405
  Transmission Date: 20120825
  Serious: No
  Sender: FDA-Public Use
  Company Number: US-ENDO PHARMACEUTICALS INC.-OPER20120493

PATIENT
  Sex: Male

DRUGS (3)
  1. OPANA ER [Suspect]
     Indication: PAIN
     Route: 048
     Dates: start: 20120330, end: 20120403
  2. OPANA ER [Suspect]
     Indication: PAIN
     Route: 048
     Dates: start: 20120330, end: 20120403
  3. OXYCODONE HCL [Concomitant]
     Indication: PAIN
     Dosage: 10 MG
     Route: 048

REACTIONS (1)
  - DRUG INEFFECTIVE [None]
